FAERS Safety Report 15275139 (Version 1)
Quarter: 2018Q4

REPORT INFORMATION
  Report Type: Spontaneous
  Country: CH (occurrence: CH)
  Receive Date: 20180814
  Receipt Date: 20180814
  Transmission Date: 20190204
  Serious: Yes (Hospitalization)
  Sender: FDA-Public Use
  Company Number: CH-B. BRAUN MEDICAL INC.-2053683

PATIENT
  Age: 61 Year
  Sex: Female
  Weight: 47 kg

DRUGS (3)
  1. HEPARIN SODIUM IN DEXTROSE [Suspect]
     Active Substance: HEPARIN SODIUM
     Dates: start: 20170313, end: 20170314
  2. MARCOUMAR [Concomitant]
     Active Substance: PHENPROCOUMON
     Dates: start: 20170329, end: 201704
  3. ANGIOX [Suspect]
     Active Substance: BIVALIRUDIN
     Dates: start: 20170315

REACTIONS (1)
  - Heparin-induced thrombocytopenia [Recovered/Resolved]

NARRATIVE: CASE EVENT DATE: 20170314
